FAERS Safety Report 9283444 (Version 1)
Quarter: 2013Q2

REPORT INFORMATION
  Report Type: Spontaneous
  Country: US (occurrence: US)
  Receive Date: 20130510
  Receipt Date: 20130510
  Transmission Date: 20140414
  Serious: No
  Sender: FDA-Public Use
  Company Number: US-GLAXOSMITHKLINE-A1008735A

PATIENT
  Age: 63 Year
  Sex: Female
  Weight: 80.9 kg

DRUGS (15)
  1. TYKERB [Suspect]
     Indication: BREAST CANCER
     Dosage: 1000MG PER DAY
     Route: 048
  2. XELODA [Suspect]
     Indication: BREAST CANCER
     Route: 048
  3. UNSPECIFIED MEDICATION [Concomitant]
  4. AMLODIPINE [Concomitant]
  5. SYNTHROID [Concomitant]
  6. BENAZEPRIL [Concomitant]
  7. PRILOSEC [Concomitant]
  8. IBUPROFEN [Concomitant]
  9. ADVIL [Concomitant]
  10. RED YEAST RICE [Concomitant]
  11. FIBER [Concomitant]
  12. CALCIUM + D [Concomitant]
  13. SENIOR MULTIVITAMIN [Concomitant]
  14. COLACE [Concomitant]
  15. OMEGA 3 [Concomitant]

REACTIONS (3)
  - Palmar-plantar erythrodysaesthesia syndrome [Unknown]
  - Stomatitis [Unknown]
  - Fatigue [Unknown]
